FAERS Safety Report 5944588-8 (Version None)
Quarter: 2008Q4

REPORT INFORMATION
  Report Type: 
  Country: None (occurrence: None)
  Receive Date: 20081105
  Receipt Date: 20081021
  Transmission Date: 20090506
  Serious: Yes (Hospitalization, Disabling)
  Sender: FDA-Public Use
  Company Number: ALA_00183_2008

PATIENT
  Sex: Female
  Weight: 56.6996 kg

DRUGS (13)
  1. REGLAN [Suspect]
     Indication: GASTROOESOPHAGEAL REFLUX DISEASE
     Dosage: 10 MG QID ORAL
     Route: 048
     Dates: start: 20000101, end: 20080701
  2. REBIF / 05983401 [Concomitant]
  3. NIFEDIPINE [Concomitant]
  4. CLONAZEPAM [Concomitant]
  5. PROZAC / 00724401 [Concomitant]
  6. DITROPAN [Concomitant]
  7. AMPHETAMINE SULFATE [Concomitant]
  8. TRIMETHOPRIM [Concomitant]
  9. PRILOSEC [Concomitant]
  10. ALBUTEROL [Concomitant]
  11. QVAR 40 [Concomitant]
  12. MASAREL / 00456601 [Concomitant]
  13. VALIUM [Concomitant]

REACTIONS (7)
  - CONCUSSION [None]
  - CONDITION AGGRAVATED [None]
  - FALL [None]
  - MULTIPLE SCLEROSIS [None]
  - MUSCLE RIGIDITY [None]
  - PARKINSONISM [None]
  - SPINAL FRACTURE [None]
